FAERS Safety Report 21306101 (Version 1)
Quarter: 2022Q3

REPORT INFORMATION
  Report Type: Spontaneous
  Country: AU (occurrence: AU)
  Receive Date: 20220908
  Receipt Date: 20220908
  Transmission Date: 20221027
  Serious: Yes (Other)
  Sender: FDA-Public Use
  Company Number: AU-BoehringerIngelheim-2022-BI-190945

PATIENT

DRUGS (5)
  1. TWYNSTA [Suspect]
     Active Substance: AMLODIPINE BESYLATE\TELMISARTAN
     Indication: Product used for unknown indication
  2. ROSUVASTATIN [Concomitant]
     Active Substance: ROSUVASTATIN
     Indication: Product used for unknown indication
  3. DIABEX [Concomitant]
     Active Substance: METFORMIN HYDROCHLORIDE
     Indication: Product used for unknown indication
  4. BISOPROLOL [Concomitant]
     Active Substance: BISOPROLOL
     Indication: Product used for unknown indication
  5. Alvesco inhalers [Concomitant]
     Indication: Product used for unknown indication
     Dosage: INHALERS
     Route: 055

REACTIONS (9)
  - Sinus arrest [Unknown]
  - Bradycardia [Unknown]
  - Tachycardia [Unknown]
  - Atrioventricular block first degree [Unknown]
  - Bundle branch block right [Unknown]
  - Bundle branch block left [Unknown]
  - Sinus arrhythmia [Unknown]
  - Supraventricular extrasystoles [Unknown]
  - Ventricular extrasystoles [Unknown]
